FAERS Safety Report 9813599 (Version 2)
Quarter: 2014Q1

REPORT INFORMATION
  Report Type: Report from Study
  Country: JP (occurrence: JP)
  Receive Date: 20140113
  Receipt Date: 20140130
  Transmission Date: 20141002
  Serious: Yes (Life-Threatening, Other)
  Sender: FDA-Public Use
  Company Number: JP-TAKEDA-2014TJP000457

PATIENT
  Age: 69 Year
  Sex: Male
  Weight: 83 kg

DRUGS (11)
  1. PIOGLITAZONE, GLIMEPIRIDE [Suspect]
     Indication: TYPE 2 DIABETES MELLITUS
     Dosage: 1 DF, QD
     Route: 048
     Dates: start: 20111129
  2. BLOPRESS [Concomitant]
     Dosage: UNK
     Route: 048
  3. JANUVIA [Concomitant]
     Indication: TYPE 2 DIABETES MELLITUS
     Dosage: 50 MG, 1 DAYS
     Route: 048
  4. LIVALO [Concomitant]
     Dosage: UNK
     Route: 048
  5. HARNAL D [Concomitant]
     Dosage: UNK
     Route: 048
  6. LENDORMIN DAINIPPO [Concomitant]
     Dosage: UNK
     Route: 048
  7. YODEL-S [Concomitant]
     Dosage: UNK
     Route: 048
  8. NEW LECICARBON [Concomitant]
     Dosage: UNK
     Route: 054
  9. CELESTAMINE                        /00252801/ [Concomitant]
     Dosage: UNK
     Route: 048
  10. PLAVIX [Concomitant]
     Dosage: UNK
     Route: 048
  11. WARFARIN POTASSIUM [Concomitant]
     Dosage: UNK
     Route: 048

REACTIONS (1)
  - Prostate cancer [Recovering/Resolving]
